FAERS Safety Report 13511332 (Version 1)
Quarter: 2017Q2

REPORT INFORMATION
  Report Type: Spontaneous
  Country: US (occurrence: US)
  Receive Date: 20170504
  Receipt Date: 20170504
  Transmission Date: 20170830
  Serious: No
  Sender: FDA-Public Use
  Company Number: US-LANTHEUS-LMI-2016-00235

PATIENT

DRUGS (1)
  1. QUADRAMET [Suspect]
     Active Substance: SAMARIUM SM-153 LEXIDRONAM PENTASODIUM
     Indication: PRODUCT USED FOR UNKNOWN INDICATION
     Dosage: UNK
     Dates: start: 201602, end: 201602

REACTIONS (2)
  - Occupational exposure to product [Unknown]
  - Skin toxicity [Unknown]

NARRATIVE: CASE EVENT DATE: 201602
